FAERS Safety Report 20508730 (Version 4)
Quarter: 2022Q2

REPORT INFORMATION
  Report Type: Spontaneous
  Country: PL (occurrence: PL)
  Receive Date: 20220223
  Receipt Date: 20220404
  Transmission Date: 20220721
  Serious: Yes (Hospitalization, Other)
  Sender: FDA-Public Use
  Company Number: PL-SUN PHARMACEUTICAL INDUSTRIES LTD-2022RR-326510

PATIENT
  Age: 18 Year
  Sex: Female

DRUGS (20)
  1. SERTRALINE HYDROCHLORIDE [Suspect]
     Active Substance: SERTRALINE HYDROCHLORIDE
     Indication: Depression
     Dosage: 50 MG
     Route: 065
  2. SERTRALINE HYDROCHLORIDE [Suspect]
     Active Substance: SERTRALINE HYDROCHLORIDE
     Indication: Bipolar I disorder
  3. SERTRALINE HYDROCHLORIDE [Suspect]
     Active Substance: SERTRALINE HYDROCHLORIDE
     Indication: Mental impairment
  4. RISPERIDONE [Suspect]
     Active Substance: RISPERIDONE
     Indication: Depression
     Dosage: 1 MG
     Route: 065
  5. RISPERIDONE [Suspect]
     Active Substance: RISPERIDONE
     Indication: Bipolar disorder
     Dosage: 2 MG
     Route: 065
  6. OLANZAPINE [Suspect]
     Active Substance: OLANZAPINE
     Indication: Depression
     Dosage: 20 MG
     Route: 065
  7. OLANZAPINE [Suspect]
     Active Substance: OLANZAPINE
     Indication: Bipolar I disorder
     Dosage: 10 MG
  8. OLANZAPINE [Suspect]
     Active Substance: OLANZAPINE
     Indication: Hyperprolactinaemia
     Dosage: 15 MG
  9. OLANZAPINE [Suspect]
     Active Substance: OLANZAPINE
     Dosage: 2 MG
  10. OLANZAPINE [Suspect]
     Active Substance: OLANZAPINE
     Dosage: 1 MG
  11. LITHIUM [Suspect]
     Active Substance: LITHIUM
     Indication: Depression
     Dosage: 2 DF, 1X/DAY
     Route: 065
  12. LITHIUM [Suspect]
     Active Substance: LITHIUM
     Indication: Bipolar I disorder
     Dosage: 5 DF, DAILY
  13. LITHIUM [Suspect]
     Active Substance: LITHIUM
     Indication: Mood altered
  14. CARBAMAZEPINE [Suspect]
     Active Substance: CARBAMAZEPINE
     Indication: Depression
     Dosage: 400 MG
     Route: 065
  15. CARBAMAZEPINE [Suspect]
     Active Substance: CARBAMAZEPINE
     Indication: Bipolar I disorder
  16. CARBAMAZEPINE [Suspect]
     Active Substance: CARBAMAZEPINE
     Indication: Bipolar disorder
  17. CLONAZEPAM [Suspect]
     Active Substance: CLONAZEPAM
     Dosage: 1 MG
     Route: 030
  18. HALOPERIDOL [Suspect]
     Active Substance: HALOPERIDOL
     Indication: Bipolar disorder
     Dosage: 5 MG
     Route: 030
  19. LEVOTHYROXINE [Concomitant]
     Active Substance: LEVOTHYROXINE
     Indication: Hypothyroidism
     Dosage: 25 UG
  20. LEVOTHYROXINE [Concomitant]
     Active Substance: LEVOTHYROXINE
     Dosage: 50 UG

REACTIONS (8)
  - Drug ineffective [Unknown]
  - Bipolar disorder [Unknown]
  - Somnolence [Recovered/Resolved]
  - Therapy partial responder [Unknown]
  - Hyperprolactinaemia [Recovered/Resolved]
  - Body mass index increased [Unknown]
  - Thyroid hormones decreased [Unknown]
  - Euphoric mood [Recovered/Resolved]
